FAERS Safety Report 19407602 (Version 1)
Quarter: 2021Q2

REPORT INFORMATION
  Report Type: Spontaneous
  Country: US (occurrence: US)
  Receive Date: 20210611
  Receipt Date: 20210611
  Transmission Date: 20210717
  Serious: No
  Sender: FDA-Public Use
  Company Number: US-MYLANLABS-2021M1030906

PATIENT
  Sex: Male
  Weight: 78 kg

DRUGS (1)
  1. MUSE [Suspect]
     Active Substance: ALPROSTADIL
     Indication: ERECTILE DYSFUNCTION
     Dosage: AS NEEDED, UP TO 2 APPLICATIONS PER 24 HOURS VIA URETHRA
     Route: 066

REACTIONS (1)
  - Pain [Not Recovered/Not Resolved]
